FAERS Safety Report 5375975-7 (Version None)
Quarter: 2007Q2

REPORT INFORMATION
  Report Type: 
  Country: None (occurrence: None)
  Receive Date: 20070627
  Receipt Date: 20070627
  Transmission Date: 20071010
  Serious: Yes (Other)
  Sender: FDA-Public Use
  Company Number: None

PATIENT
  Age: 49 Year
  Sex: Male
  Weight: 113.3993 kg

DRUGS (2)
  1. PROAIR HFA [Suspect]
     Indication: ASTHMA
     Dosage: 1-2X PUFFS  4 TO 6 HOURS  INHAL
     Route: 055
     Dates: start: 20070401, end: 20070626
  2. PROAIR HFA [Suspect]
     Indication: CHRONIC OBSTRUCTIVE PULMONARY DISEASE
     Dosage: 1-2X PUFFS  4 TO 6 HOURS  INHAL
     Route: 055
     Dates: start: 20070401, end: 20070626

REACTIONS (4)
  - DEVICE MALFUNCTION [None]
  - DRUG INEFFECTIVE [None]
  - HEART RATE ABNORMAL [None]
  - WHEEZING [None]
